FAERS Safety Report 19930390 (Version 1)
Quarter: 2021Q4

REPORT INFORMATION
  Report Type: Spontaneous
  Country: CA (occurrence: CA)
  Receive Date: 20211007
  Receipt Date: 20211007
  Transmission Date: 20220303
  Serious: Yes (Hospitalization, Other)
  Sender: FDA-Public Use
  Company Number: CA-TEVA-2021-CA-1961465

PATIENT
  Age: 26 Year
  Sex: Female
  Weight: 54 kg

DRUGS (1)
  1. MODAFINIL [Suspect]
     Active Substance: MODAFINIL
     Indication: Narcolepsy
     Dosage: 300 MILLIGRAM DAILY;
     Route: 048

REACTIONS (8)
  - Affect lability [Recovered/Resolved]
  - Ideas of reference [Recovered/Resolved]
  - Irritability [Recovered/Resolved]
  - Nervousness [Recovered/Resolved]
  - Substance-induced psychotic disorder [Recovered/Resolved]
  - Suspiciousness [Recovered/Resolved]
  - Disorientation [Recovered/Resolved]
  - Inappropriate affect [Recovered/Resolved]
